FAERS Safety Report 9457857 (Version 1)
Quarter: 2013Q3

REPORT INFORMATION
  Report Type: Spontaneous
  Country: US (occurrence: US)
  Receive Date: 20130814
  Receipt Date: 20130814
  Transmission Date: 20140515
  Serious: No
  Sender: FDA-Public Use
  Company Number: US-PFIZER INC-2013234671

PATIENT
  Sex: Female

DRUGS (3)
  1. GABAPENTIN [Suspect]
     Indication: PAIN
     Dosage: UNK
  2. GABAPENTIN [Suspect]
     Indication: NEUROPATHY PERIPHERAL
  3. GABAPENTIN [Suspect]
     Indication: DIABETIC NEUROPATHY

REACTIONS (1)
  - Drug ineffective [Unknown]
